FAERS Safety Report 17412178 (Version 1)
Quarter: 2020Q1

REPORT INFORMATION
  Report Type: Spontaneous
  Country: US (occurrence: US)
  Receive Date: 20200213
  Receipt Date: 20200213
  Transmission Date: 20200409
  Serious: Yes (Hospitalization, Other)
  Sender: FDA-Public Use
  Company Number: US-QUAGEN PHARMA LLC-2020QUALIT00026

PATIENT
  Age: 10 Year
  Sex: Male

DRUGS (7)
  1. THEOPHYLLINE [Suspect]
     Active Substance: THEOPHYLLINE ANHYDROUS
  2. KETAMINE [Concomitant]
     Active Substance: KETAMINE
  3. TERBUTALINE [Suspect]
     Active Substance: TERBUTALINE
  4. IPRATROPIUM BROMIDE. [Concomitant]
     Active Substance: IPRATROPIUM BROMIDE
  5. ALBUTEROL SULFATE SYRUP [Suspect]
     Active Substance: ALBUTEROL SULFATE
  6. MAGNESIUM [Concomitant]
     Active Substance: MAGNESIUM
  7. METHYLPREDNISOLONE. [Concomitant]
     Active Substance: METHYLPREDNISOLONE

REACTIONS (2)
  - Therapeutic product effect decreased [None]
  - Wolff-Parkinson-White syndrome [Recovered/Resolved]
